FAERS Safety Report 6764088-5 (Version None)
Quarter: 2010Q2

REPORT INFORMATION
  Report Type: 
  Country: None (occurrence: None)
  Receive Date: 20100610
  Receipt Date: 20090724
  Transmission Date: 20101027
  Serious: No
  Sender: FDA-Public Use
  Company Number: A0799930A

PATIENT
  Age: 12 Year
  Sex: Female

DRUGS (4)
  1. AXID [Suspect]
     Dosage: 150MG TWICE PER DAY
     Route: 048
  2. DYE [Suspect]
  3. ZYRTEC [Concomitant]
  4. LAC-HYDRIN [Concomitant]

REACTIONS (1)
  - URTICARIA [None]
